FAERS Safety Report 12563053 (Version 1)
Quarter: 2016Q3

REPORT INFORMATION
  Report Type: Spontaneous
  Country: MY (occurrence: MY)
  Receive Date: 20160715
  Receipt Date: 20160715
  Transmission Date: 20161109
  Serious: Yes (Other)
  Sender: FDA-Public Use
  Company Number: MY-PFIZER INC-2016331165

PATIENT
  Age: 27 Year
  Sex: Male

DRUGS (2)
  1. DBL ACETYLCYSTEINE [Suspect]
     Active Substance: ACETYLCYSTEINE
     Indication: TRANSAMINASES INCREASED
     Dosage: 10 G, SINGLE
     Route: 042
  2. CEFTRIAXONE. [Concomitant]
     Active Substance: CEFTRIAXONE

REACTIONS (4)
  - Localised oedema [Recovered/Resolved]
  - Face oedema [Recovered/Resolved]
  - Vomiting [Recovered/Resolved]
  - Urticaria [Recovered/Resolved]

NARRATIVE: CASE EVENT DATE: 20150228
